FAERS Safety Report 9538331 (Version 1)
Quarter: 2013Q3

REPORT INFORMATION
  Report Type: Spontaneous
  Country: US (occurrence: US)
  Receive Date: 20130920
  Receipt Date: 20130920
  Transmission Date: 20140515
  Serious: No
  Sender: FDA-Public Use
  Company Number: US-BAYER-2013-113153

PATIENT
  Age: 54 Year
  Sex: Male
  Weight: 61.22 kg

DRUGS (7)
  1. BETASERON [Suspect]
     Dosage: 0.25 MG, QOD
     Route: 058
  2. MODAFINIL [Concomitant]
     Dosage: 100 MG, UNK
  3. SOLU-MEDROL [Concomitant]
     Dosage: 1 GM, UNK
  4. TYLENOL [PARACETAMOL] [Concomitant]
     Dosage: 325 MG, UNK
  5. ADVIL [Concomitant]
     Dosage: 200 MG, UNK
  6. LISINOPRIL [Concomitant]
     Dosage: 20 MG, UNK
  7. BENADRYL [Concomitant]
     Dosage: 25 MG, UNK

REACTIONS (3)
  - Influenza like illness [Unknown]
  - Injection site erythema [Unknown]
  - Pruritus [Unknown]
